FAERS Safety Report 9785542 (Version 2)
Quarter: 2013Q4

REPORT INFORMATION
  Report Type: Spontaneous
  Country: US (occurrence: US)
  Receive Date: 20131227
  Receipt Date: 20131227
  Transmission Date: 20140711
  Serious: Yes (Hospitalization, Other)
  Sender: FDA-Public Use
  Company Number: US-ASTELLAS-2013US012216

PATIENT
  Sex: Male
  Weight: 75 kg

DRUGS (2)
  1. PROGRAF [Suspect]
     Indication: RENAL TRANSPLANT
     Dosage: 2 MG IN MORNING AND 1 MG IN EVENING
     Route: 048
     Dates: start: 20080920
  2. MYFORTIC [Concomitant]
     Indication: RENAL TRANSPLANT
     Dosage: 360 MG, BID
     Route: 048
     Dates: start: 200809

REACTIONS (3)
  - Surgery [Unknown]
  - Infection [Unknown]
  - Abscess [Recovered/Resolved]
